FAERS Safety Report 12836802 (Version 1)
Quarter: 2016Q4

REPORT INFORMATION
  Report Type: Spontaneous
  Country: US (occurrence: US)
  Receive Date: 20161011
  Receipt Date: 20161011
  Transmission Date: 20170207
  Serious: No
  Sender: FDA-Public Use
  Company Number: US-WATSON-2016-04844

PATIENT
  Sex: Female

DRUGS (2)
  1. ALBUTEROL SULFATE (WATSON LABORATORIES) [Suspect]
     Active Substance: ALBUTEROL SULFATE
     Indication: PRODUCT USED FOR UNKNOWN INDICATION
     Dosage: UNK, UNKNOWN
     Route: 055
  2. ALBUTEROL SULFATE (WATSON LABORATORIES) [Suspect]
     Active Substance: ALBUTEROL SULFATE
     Indication: PRODUCT USED FOR UNKNOWN INDICATION
     Dosage: UNK, UNKNOWN
     Route: 055

REACTIONS (1)
  - Anxiety [Unknown]
